FAERS Safety Report 5410190-X (Version None)
Quarter: 2007Q3

REPORT INFORMATION
  Report Type: 
  Country: None (occurrence: None)
  Receive Date: 20070809
  Receipt Date: 20070802
  Transmission Date: 20080115
  Serious: Yes (Other)
  Sender: FDA-Public Use
  Company Number: US-GENENTECH-245651

PATIENT
  Sex: Female
  Weight: 87.075 kg

DRUGS (2)
  1. AVASTIN [Suspect]
     Indication: OVARIAN CANCER
     Dosage: 1300 MG, Q4W
     Route: 042
     Dates: start: 20070620
  2. GEMZAR [Concomitant]
     Indication: OVARIAN CANCER
     Dosage: 1512 MG, UNK
     Dates: start: 20070620

REACTIONS (1)
  - PLATELET COUNT INCREASED [None]
